FAERS Safety Report 14389790 (Version 2)
Quarter: 2019Q2

REPORT INFORMATION
  Report Type: Report from Study
  Country: BR (occurrence: BR)
  Receive Date: 20180115
  Receipt Date: 20190502
  Transmission Date: 20190711
  Serious: Yes (Other)
  Sender: FDA-Public Use
  Company Number: PHHY2015BR124181

PATIENT
  Sex: Female
  Weight: 85 kg

DRUGS (8)
  1. SANDOSTATIN LAR DEPOT [Suspect]
     Active Substance: OCTREOTIDE ACETATE
     Indication: ACROMEGALY
     Dosage: 30 MG, QMO (EVERY 28 DAYS)
     Route: 030
  2. INFLUENZA VACCINE [Suspect]
     Active Substance: INFLUENZA VIRUS VACCINE
     Indication: PRODUCT USED FOR UNKNOWN INDICATION
     Dosage: UNK
     Route: 065
     Dates: start: 2004
  3. ENALAPRIL MALEATE. [Concomitant]
     Active Substance: ENALAPRIL MALEATE
     Indication: HYPERTENSION
     Dosage: 1 DF, QD
     Route: 048
  4. CABERGOLINE. [Concomitant]
     Active Substance: CABERGOLINE
     Indication: NEOPLASM
     Dosage: UNK UNK, QW3
     Route: 065
  5. GLIFAGE [Concomitant]
     Active Substance: METFORMIN HYDROCHLORIDE
     Indication: DIABETES MELLITUS
     Dosage: 4 DF, QD
     Route: 048
  6. SYNTHROID [Concomitant]
     Active Substance: LEVOTHYROXINE SODIUM
     Indication: THYROID DISORDER
     Dosage: 1 DF, QD
  7. SANDOSTATIN LAR DEPOT [Suspect]
     Active Substance: OCTREOTIDE ACETATE
     Indication: NEUROENDOCRINE TUMOUR
  8. HYDROCHLOROTHIAZIDE. [Concomitant]
     Active Substance: HYDROCHLOROTHIAZIDE
     Indication: HYPERTENSION
     Dosage: 1 DF, QD (10 YEAR AGO)
     Route: 048

REACTIONS (18)
  - Dysphonia [Unknown]
  - Wrong technique in product usage process [Unknown]
  - Neoplasm progression [Unknown]
  - Catarrh [Unknown]
  - Osteoarthritis [Not Recovered/Not Resolved]
  - Pyrexia [Recovered/Resolved]
  - Pituitary tumour [Unknown]
  - Productive cough [Unknown]
  - Arthralgia [Unknown]
  - Overweight [Unknown]
  - Injection site mass [Recovered/Resolved]
  - Injection site warmth [Recovered/Resolved]
  - Influenza [Unknown]
  - Injection site pain [Recovered/Resolved]
  - Decreased immune responsiveness [Unknown]
  - Rhinorrhoea [Unknown]
  - Cough [Unknown]
  - Chondropathy [Unknown]
